FAERS Safety Report 15673691 (Version 1)
Quarter: 2018Q4

REPORT INFORMATION
  Report Type: Spontaneous
  Country: FR (occurrence: FR)
  Receive Date: 20181129
  Receipt Date: 20181129
  Transmission Date: 20190205
  Serious: Yes (Death, Congenital Anomaly)
  Sender: FDA-Public Use
  Company Number: PHHY2018FR167937

PATIENT
  Sex: Male

DRUGS (2)
  1. TEGRETOL [Suspect]
     Active Substance: CARBAMAZEPINE
     Indication: FOETAL EXPOSURE DURING PREGNANCY
     Dosage: UNK
     Route: 064
  2. GILENYA [Suspect]
     Active Substance: FINGOLIMOD HYDROCHLORIDE
     Indication: FOETAL EXPOSURE DURING PREGNANCY
     Dosage: UNK MG, UNK
     Route: 064

REACTIONS (1)
  - Foetal death [Fatal]

NARRATIVE: CASE EVENT DATE: 20181019
